FAERS Safety Report 4416705-2 (Version None)
Quarter: 2004Q2

REPORT INFORMATION
  Report Type: 
  Country: None (occurrence: None)
  Receive Date: 20040630
  Receipt Date: 20040311
  Transmission Date: 20050107
  Serious: No
  Sender: FDA-Public Use
  Company Number: 04P-163-0253115-00

PATIENT
  Age: 49 Year
  Sex: Female

DRUGS (11)
  1. HUMIRA [Suspect]
     Indication: RHEUMATOID ARTHRITIS
     Dosage: SEE IMAGE
     Route: 058
     Dates: start: 20030701, end: 20031001
  2. HUMIRA [Suspect]
     Indication: RHEUMATOID ARTHRITIS
     Dosage: SEE IMAGE
     Route: 058
     Dates: start: 20031001, end: 20031111
  3. HUMIRA [Suspect]
     Indication: RHEUMATOID ARTHRITIS
     Dosage: SEE IMAGE
     Route: 058
     Dates: start: 20040101
  4. LEVOTHYROID [Concomitant]
  5. CELECOXIB [Concomitant]
  6. SULFASALAZINE [Concomitant]
  7. METHOTREXATE [Concomitant]
  8. PREDNISONE [Concomitant]
  9. FOLIC ACID [Concomitant]
  10. GLUCOSAMINE W/CHONDROITIN SULFATES [Concomitant]
  11. CALCIUM [Concomitant]

REACTIONS (3)
  - DRUG EFFECT DECREASED [None]
  - KIDNEY INFECTION [None]
  - PAIN [None]
